FAERS Safety Report 6049146-5 (Version None)
Quarter: 2009Q1

REPORT INFORMATION
  Report Type: 
  Country: None (occurrence: None)
  Receive Date: 20090123
  Receipt Date: 20090119
  Transmission Date: 20090719
  Serious: Yes (Death, Hospitalization)
  Sender: FDA-Public Use
  Company Number: JP-ELI_LILLY_AND_COMPANY-JP200812004804

PATIENT
  Sex: Female
  Weight: 52 kg

DRUGS (9)
  1. SOMATROPIN [Suspect]
     Indication: GROWTH HORMONE DEFICIENCY
     Dosage: 0.156 MG, DAILY (1/D)
     Route: 058
     Dates: start: 20080307, end: 20080608
  2. SOMATROPIN [Suspect]
     Dosage: 0.312 MG, DAILY (1/D)
     Route: 058
     Dates: start: 20080609, end: 20081112
  3. THYRADIN S [Concomitant]
     Indication: SECONDARY HYPOTHYROIDISM
     Dosage: 25 UG, DAILY (1/D)
     Route: 048
     Dates: start: 20020308
  4. CORTRIL [Concomitant]
     Indication: SECONDARY ADRENOCORTICAL INSUFFICIENCY
     Dosage: 10 MG, DAILY (1/D)
     Route: 048
     Dates: start: 19971024
  5. PREMARIN [Concomitant]
     Indication: SECONDARY HYPOGONADISM
     Dosage: 1.25 MG, DAILY (1/D)
     Route: 048
     Dates: start: 20001222
  6. LUTORAL [Concomitant]
     Indication: SECONDARY HYPOGONADISM
     Dosage: 4 MG, DAILY (1/D)
     Route: 048
     Dates: start: 19980724
  7. DESMOPRESSIN /00361902/ [Concomitant]
     Indication: DIABETES INSIPIDUS
     Dosage: 10 UG, DAILY (1/D)
     Route: 045
     Dates: start: 19971024
  8. LIPITOR [Concomitant]
     Indication: HYPERLIPIDAEMIA
     Dosage: 10 MG, DAILY (1/D)
     Route: 048
     Dates: start: 20080905
  9. DIOVAN /01319601/ [Concomitant]
     Indication: HYPERTENSION
     Dosage: 80 MG, DAILY (1/D)
     Route: 048
     Dates: start: 20081006

REACTIONS (1)
  - CEREBRAL HAEMORRHAGE [None]
